FAERS Safety Report 8616443 (Version 2)
Quarter: 2013Q1

REPORT INFORMATION
  Report Type: Spontaneous
  Country: FR (occurrence: FR)
  Receive Date: 20120615
  Receipt Date: 20121005
  Transmission Date: 20140127
  Serious: Yes (Hospitalization)
  Sender: FDA-Public Use
  Company Number: FR-AMGEN-FRASP2012035733

PATIENT
  Age: 56 Year
  Sex: Male

DRUGS (8)
  1. ROZEX (METRONIDAZOLE) [Suspect]
     Indication: ROSACEA
     Route: 061
     Dates: start: 20120429, end: 20120506
  2. ASPIRIN /00002701/ [Concomitant]
     Indication: RHEUMATOID ARTHRITIS
  3. CRESTOR /01588601/ [Concomitant]
     Dosage: UNK
     Route: 048
  4. ESKIM [Concomitant]
  5. CONGESCOR [Concomitant]
  6. ADVANTAN [Concomitant]
  7. LOSAPREX [Concomitant]
  8. COSMETICS [Concomitant]

REACTIONS (4)
  - Skin reaction [Unknown]
  - Eyelid oedema [Unknown]
  - Rash pustular [None]
  - Erythema of eyelid [None]
